FAERS Safety Report 13572197 (Version 1)
Quarter: 2017Q2

REPORT INFORMATION
  Report Type: Spontaneous
  Country: US (occurrence: US)
  Receive Date: 20170523
  Receipt Date: 20170523
  Transmission Date: 20170830
  Serious: No
  Sender: FDA-Public Use
  Company Number: None

PATIENT
  Age: 83 Year
  Sex: Male

DRUGS (1)
  1. XGEVA [Suspect]
     Active Substance: DENOSUMAB

REACTIONS (4)
  - Hot flush [None]
  - Oedema peripheral [None]
  - Therapy non-responder [None]
  - Skin tightness [None]

NARRATIVE: CASE EVENT DATE: 20170401
